FAERS Safety Report 8043454-4 (Version None)
Quarter: 2012Q1

REPORT INFORMATION
  Report Type: 
  Country: None (occurrence: None)
  Receive Date: 20120112
  Receipt Date: 20120111
  Transmission Date: 20120608
  Serious: No
  Sender: FDA-Public Use
  Company Number: US-B.I. PHARMACEUTICALS,INC./RIDGEFIELD-2012-BP-00650BP

PATIENT
  Sex: Female

DRUGS (5)
  1. PRADAXA [Suspect]
     Indication: ATRIAL FIBRILLATION
     Dosage: 300 MG
     Route: 048
     Dates: start: 20110826
  2. DILTIAZEM HCL [Concomitant]
     Indication: HYPERTENSION
     Dosage: 180 MG
     Route: 048
  3. MULTI-VITAMIN [Concomitant]
     Indication: SUPPLEMENTATION THERAPY
     Route: 048
  4. AVAPRO [Concomitant]
     Indication: HYPERTENSION
     Dosage: 300 MG
     Route: 048
  5. ACEBUTLOL [Concomitant]
     Indication: HYPERTENSION
     Dosage: 10 MG
     Route: 048

REACTIONS (3)
  - FREQUENT BOWEL MOVEMENTS [None]
  - NAUSEA [None]
  - ABDOMINAL DISCOMFORT [None]
